FAERS Safety Report 26137128 (Version 1)
Quarter: 2025Q4

REPORT INFORMATION
  Report Type: Spontaneous
  Country: US (occurrence: US)
  Receive Date: 20251209
  Receipt Date: 20251209
  Transmission Date: 20260119
  Serious: No
  Sender: BRISTOL-MYERS SQUIBB COMPANY
  Company Number: US-BRISTOL-MYERS SQUIBB COMPANY-2025-165532

PATIENT
  Age: 75 Year
  Sex: Male

DRUGS (21)
  1. REVLIMID [Suspect]
     Active Substance: LENALIDOMIDE
     Indication: Product used for unknown indication
     Route: 048
     Dates: start: 20231212
  2. ASPIRIN [Concomitant]
     Active Substance: ASPIRIN
     Indication: Product used for unknown indication
     Route: 048
  3. MINERALS\VITAMINS [Concomitant]
     Active Substance: MINERALS\VITAMINS
     Indication: Product used for unknown indication
  4. COD LIVER OIL [Concomitant]
     Active Substance: COD LIVER OIL
     Indication: Product used for unknown indication
     Dosage: 1250 -130 UNIT
     Dates: start: 20220714, end: 20250701
  5. FLUAD NOS [Concomitant]
     Active Substance: INFLUENZA VIRUS VACCINE
     Indication: Product used for unknown indication
     Dosage: 0.5 ML SUSY
     Dates: start: 20240823, end: 20250819
  6. FLUTICASONE PROPIONATE [Concomitant]
     Active Substance: FLUTICASONE PROPIONATE
     Indication: Product used for unknown indication
     Dosage: SPRAY
  7. GABAPENTIN [Concomitant]
     Active Substance: GABAPENTIN
     Indication: Product used for unknown indication
     Dosage: 1 CAPSULE AT BEDTIME.?100 MILLIGRAM CAPS FROM 18-7-2023 TO 1-JUL-2025
     Dates: start: 20231115
  8. INDAPAMIDE [Concomitant]
     Active Substance: INDAPAMIDE
     Indication: Product used for unknown indication
  9. KEPPRA [Concomitant]
     Active Substance: LEVETIRACETAM
     Indication: Product used for unknown indication
  10. LABETALOL HYDROCHLORIDE [Concomitant]
     Active Substance: LABETALOL HYDROCHLORIDE
     Indication: Product used for unknown indication
     Route: 048
     Dates: start: 20220713, end: 20250701
  11. LATANOPROST [Concomitant]
     Active Substance: LATANOPROST
     Indication: Product used for unknown indication
     Dosage: 0.005% SOL
     Dates: start: 20220714, end: 20250701
  12. LINZESS [Concomitant]
     Active Substance: LINACLOTIDE
     Indication: Product used for unknown indication
     Route: 048
  13. LOSARTAN POTASSIUM [Concomitant]
     Active Substance: LOSARTAN POTASSIUM
     Indication: Product used for unknown indication
     Dosage: AUR
     Dates: start: 20220713, end: 20250701
  14. MAGNESIUM CITRATE [Concomitant]
     Active Substance: MAGNESIUM CITRATE
     Indication: Product used for unknown indication
  15. MAGNESIUM GLYCINATE [Concomitant]
     Active Substance: MAGNESIUM GLYCINATE
     Indication: Product used for unknown indication
  16. METAMUCIL 4 IN 1 FIBER [Concomitant]
     Indication: Product used for unknown indication
     Dosage: 43% POWD
  17. PANTOPRAZOLE SODIUM [Concomitant]
     Active Substance: PANTOPRAZOLE SODIUM
     Indication: Product used for unknown indication
     Dosage: TBEC
     Dates: start: 20220713, end: 20250701
  18. POTASSIUM CHLORIDE [Concomitant]
     Active Substance: POTASSIUM CHLORIDE
     Indication: Product used for unknown indication
     Dosage: TBCR
     Dates: start: 20220815, end: 20250701
  19. TRELEGY ELLIPTAINH [Concomitant]
     Indication: Asthma
     Dosage: AS NEEDED 100-62.5-25 MCG
  20. VITAMIN C [Concomitant]
     Active Substance: ASCORBIC ACID
     Indication: Product used for unknown indication
     Route: 048
     Dates: start: 20220714, end: 20250701
  21. ASPIRIN [Concomitant]
     Active Substance: ASPIRIN
     Indication: Product used for unknown indication
     Route: 048
     Dates: start: 20220714, end: 20250701

REACTIONS (9)
  - Abdominal pain [Unknown]
  - Back pain [Unknown]
  - Cough [Unknown]
  - Gingival bleeding [Unknown]
  - Pain in extremity [Unknown]
  - Hyperhidrosis [Unknown]
  - Vomiting [Unknown]
  - Asthenia [Unknown]
  - Wheezing [Unknown]
